FAERS Safety Report 4899169-4 (Version None)
Quarter: 2006Q1

REPORT INFORMATION
  Report Type: 
  Country: None (occurrence: None)
  Receive Date: 20060130
  Receipt Date: 20060110
  Transmission Date: 20060701
  Serious: No
  Sender: FDA-Public Use
  Company Number: 2005EU002002

PATIENT
  Age: 4 Year
  Sex: Male

DRUGS (1)
  1. PROTOPIC [Suspect]
     Indication: DERMATITIS ATOPIC
     Dosage: 0.03%, CYCLIC, TOPICAL
     Route: 061
     Dates: start: 20021230

REACTIONS (1)
  - SKIN PAPILLOMA [None]
